FAERS Safety Report 8619845-7 (Version None)
Quarter: 2012Q3

REPORT INFORMATION
  Report Type: 
  Country: None (occurrence: None)
  Receive Date: 20120824
  Receipt Date: 20120815
  Transmission Date: 20120928
  Serious: Yes (Congenital Anomaly, Other)
  Sender: FDA-Public Use
  Company Number: CA-ABBOTT-12P-028-0969346-00

PATIENT

DRUGS (1)
  1. HUMIRA [Suspect]
     Indication: EXPOSURE VIA FATHER
     Route: 050

REACTIONS (7)
  - EXPOSURE VIA FATHER [None]
  - CLEFT LIP AND PALATE [None]
  - DYSMORPHISM [None]
  - TALIPES [None]
  - PATENT DUCTUS ARTERIOSUS [None]
  - PREMATURE BABY [None]
  - CONGENITAL HAND MALFORMATION [None]
